FAERS Safety Report 6458485-5 (Version None)
Quarter: 2009Q4

REPORT INFORMATION
  Report Type: 
  Country: None (occurrence: None)
  Receive Date: 20091126
  Receipt Date: 20091119
  Transmission Date: 20100525
  Serious: Yes (Hospitalization, Other)
  Sender: FDA-Public Use
  Company Number: US-ASTRAZENECA-2006UW12078

PATIENT
  Age: 62 Year
  Sex: Female
  Weight: 111.6 kg

DRUGS (14)
  1. SEROQUEL [Suspect]
     Dosage: 100-300 MG
     Route: 048
     Dates: start: 20010108
  2. ZYPREXA [Suspect]
     Route: 065
     Dates: start: 19960101, end: 20060101
  3. ZYPREXA [Suspect]
     Dosage: 5-7.5 MG DAILY
     Route: 065
     Dates: start: 19970325
  4. ABILIFY [Concomitant]
     Dates: start: 20060401, end: 20060801
  5. RISPERDAL [Concomitant]
     Dates: start: 20060801
  6. DOLOBID [Concomitant]
     Indication: ARTHRALGIA
     Dates: start: 20020219
  7. VERELAN [Concomitant]
     Indication: HYPERTENSION
     Dates: start: 19980820
  8. PROZAC [Concomitant]
     Dosage: 20-40 MG DAILY
     Route: 048
     Dates: start: 19970325
  9. LOTENSIN [Concomitant]
     Indication: HYPERTENSION
     Dosage: 20-40 MG DAILY
     Route: 048
     Dates: start: 19980820
  10. LOTENSIN [Concomitant]
     Indication: DRUG THERAPY
     Dosage: 20-40 MG DAILY
     Route: 048
     Dates: start: 19980820
  11. LIPITOR [Concomitant]
     Dosage: 10-40 MG DAILY
     Dates: start: 20020709
  12. GLUCOVANCE [Concomitant]
     Dosage: 5/500 TWO IN THE MORNING AND ONE IN THE EVENING
     Dates: start: 20010629
  13. ASPIRIN [Concomitant]
     Route: 048
     Dates: start: 20020709
  14. SYNTHROID [Concomitant]
     Dosage: 112 MCG, 0.05-0.25 MG
     Dates: start: 20020709

REACTIONS (6)
  - ANKLE FRACTURE [None]
  - COLONIC OBSTRUCTION [None]
  - HYPOGLYCAEMIA [None]
  - NEUROPATHY PERIPHERAL [None]
  - SMALL INTESTINAL OBSTRUCTION [None]
  - TYPE 2 DIABETES MELLITUS [None]
